FAERS Safety Report 5412677-2 (Version None)
Quarter: 2007Q3

REPORT INFORMATION
  Report Type: 
  Country: None (occurrence: None)
  Receive Date: 20070813
  Receipt Date: 20070802
  Transmission Date: 20080115
  Serious: Yes (Hospitalization)
  Sender: FDA-Public Use
  Company Number: SE-SANOFI-SYNTHELABO-A01200708528

PATIENT
  Age: 35 Year
  Sex: Female

DRUGS (3)
  1. PLAQUENIL [Suspect]
     Indication: ARTHRALGIA
     Route: 048
     Dates: start: 20051117, end: 20051130
  2. PLAQUENIL [Suspect]
     Route: 048
     Dates: start: 20051201, end: 20051201
  3. CITODON [Concomitant]
     Indication: HEADACHE
     Dosage: 30MG/500MG
     Route: 048

REACTIONS (2)
  - ERYTHEMA MULTIFORME [None]
  - PRURITUS [None]
